FAERS Safety Report 16675920 (Version 1)
Quarter: 2019Q3

REPORT INFORMATION
  Report Type: Spontaneous
  Country: ES (occurrence: ES)
  Receive Date: 20190807
  Receipt Date: 20190807
  Transmission Date: 20191004
  Serious: Yes (Other)
  Sender: FDA-Public Use
  Company Number: ES-AUROBINDO-AUR-APL-2019-045558

PATIENT

DRUGS (6)
  1. OXYCODONE/NALOXONE SANDOZ [Suspect]
     Active Substance: NALOXONE HYDROCHLORIDE\OXYCODONE HYDROCHLORIDE
     Indication: BONE PAIN
     Dosage: 30 MILLIGRAM, ONCE A DAY (15 MILLIGRAM, Q12H(10+5 MG))
     Route: 065
     Dates: start: 201701
  2. BUPRENORPHINE. [Suspect]
     Active Substance: BUPRENORPHINE
     Indication: BONE PAIN
     Dosage: UNK
     Route: 065
     Dates: start: 201602
  3. IBUPROFEN. [Suspect]
     Active Substance: IBUPROFEN
     Indication: BONE PAIN
     Dosage: 1200 MILLIGRAM, ONCE A DAY (600 MG EVERY 12 HOUR(S))
     Route: 065
     Dates: start: 201701
  4. PREGABALIN. [Suspect]
     Active Substance: PREGABALIN
     Indication: BONE PAIN
     Dosage: 300 MILLIGRAM, ONCE A DAY (150 MG EVERY 12 HOUR(S))
     Route: 065
     Dates: start: 201701
  5. BUPRENORPHINE. [Suspect]
     Active Substance: BUPRENORPHINE
     Dosage: UNK
     Route: 065
     Dates: start: 201701
  6. MORPHINE SULFATE. [Suspect]
     Active Substance: MORPHINE SULFATE
     Indication: BREAKTHROUGH PAIN
     Dosage: 10 MILLIGRAM (10 MG (4-5 MORPHINE RESCUES), UNK)
     Route: 065
     Dates: start: 201701

REACTIONS (4)
  - Off label use [Unknown]
  - Somnolence [Recovering/Resolving]
  - Disorientation [Recovering/Resolving]
  - Neurotoxicity [Recovering/Resolving]

NARRATIVE: CASE EVENT DATE: 201701
